FAERS Safety Report 6017813-5 (Version None)
Quarter: 2008Q4

REPORT INFORMATION
  Report Type: 
  Country: None (occurrence: None)
  Receive Date: 20081223
  Receipt Date: 20081215
  Transmission Date: 20090506
  Serious: Yes (Other)
  Sender: FDA-Public Use
  Company Number: US-ROCHE-601962

PATIENT
  Age: 62 Year
  Sex: Female

DRUGS (10)
  1. CAPECITABINE [Suspect]
     Indication: BREAST CANCER
     Route: 065
  2. BEVACIZUMAB [Suspect]
     Indication: BREAST CANCER
     Route: 065
  3. ABRAXANE [Suspect]
     Indication: BREAST CANCER
     Dosage: NANOPARTICLE ALBUMIN-BOUND (NAB)-PACLITAXEL
     Route: 065
  4. RANITIDINE [Concomitant]
  5. OMEPRAZOLE [Concomitant]
  6. DOXAZOSIN MESYLATE [Concomitant]
  7. LOVENOX [Concomitant]
  8. WARFARIN SODIUM [Concomitant]
  9. LOW MOLECULAR WEIGHT HEPARIN [Concomitant]
  10. FONDAPARINUX SODIUM [Concomitant]
     Dosage: DRUG REPORTED AS: 'FONDAPARINUX'

REACTIONS (2)
  - BREAST CANCER [None]
  - HEPATOTOXICITY [None]
